FAERS Safety Report 25215770 (Version 1)
Quarter: 2025Q2

REPORT INFORMATION
  Report Type: Report from Study
  Country: ZA (occurrence: ZA)
  Receive Date: 20250418
  Receipt Date: 20250418
  Transmission Date: 20250717
  Serious: No
  Sender: SANDOZ
  Company Number: ZA-SANDOZ-SDZ2025ZA023720

PATIENT
  Sex: Male

DRUGS (1)
  1. ERELZI [Suspect]
     Active Substance: ETANERCEPT-SZZS
     Indication: Ankylosing spondylitis
     Dosage: 50 MG QW
     Route: 058
     Dates: start: 20240902

REACTIONS (2)
  - Device use error [Unknown]
  - Device defective [Unknown]
